FAERS Safety Report 12705012 (Version 1)
Quarter: 2016Q3

REPORT INFORMATION
  Report Type: Report from Study
  Country: None (occurrence: US)
  Receive Date: 20160831
  Receipt Date: 20160831
  Transmission Date: 20161109
  Serious: Yes (Hospitalization)
  Sender: FDA-Public Use
  Company Number: US-KAMADA LIMITED-2016US000245

PATIENT

DRUGS (17)
  1. VITAMINS WITH MINERALS [Concomitant]
     Active Substance: MINERALS\VITAMINS
     Dosage: DAILY
  2. CALCIUM [Concomitant]
     Active Substance: CALCIUM
     Dosage: 500MG DAILY
  3. SPIRIVA [Concomitant]
     Active Substance: TIOTROPIUM BROMIDE MONOHYDRATE
  4. GLASSIA [Suspect]
     Active Substance: .ALPHA.1-PROTEINASE INHIBITOR HUMAN
     Indication: ALPHA-1 ANTI-TRYPSIN DEFICIENCY
     Dosage: UNK
     Route: 042
     Dates: start: 201509
  5. VITAMIN D                          /00107901/ [Concomitant]
     Active Substance: ERGOCALCIFEROL
     Dosage: 1000 IU DAILY
  6. RISPERIDONE. [Concomitant]
     Active Substance: RISPERIDONE
     Dosage: 0.5MG DAILY
  7. ALBUTEROL                          /00139501/ [Concomitant]
     Active Substance: ALBUTEROL
  8. PROAIR HFA [Concomitant]
     Active Substance: ALBUTEROL SULFATE
  9. METOPROLOL. [Concomitant]
     Active Substance: METOPROLOL
     Dosage: ? OF 25MG TWICE DAILY
  10. XOLAIR [Suspect]
     Active Substance: OMALIZUMAB
     Dosage: EVERY OTHER WEEK
     Route: 058
  11. SIMVASTATIN. [Concomitant]
     Active Substance: SIMVASTATIN
     Dosage: 10MG DAILY
  12. METFORMIN [Concomitant]
     Active Substance: METFORMIN HYDROCHLORIDE
     Dosage: 500MG TWICE DAILY
  13. LISINOPRIL. [Concomitant]
     Active Substance: LISINOPRIL
     Dosage: ? OF 20MG TWICE DAILY
  14. CITALOPRAM [Concomitant]
     Active Substance: CITALOPRAM HYDROBROMIDE
     Dosage: 40MG DAILY
  15. RANITIDINE. [Concomitant]
     Active Substance: RANITIDINE
     Dosage: 150MG DAILY
  16. LORATADINE. [Concomitant]
     Active Substance: LORATADINE
     Indication: HYPERSENSITIVITY
     Dosage: DAILY
  17. FISH OIL [Concomitant]
     Active Substance: FISH OIL
     Dosage: 1GM DAILY

REACTIONS (1)
  - Pneumonia [Unknown]
